FAERS Safety Report 24956542 (Version 1)
Quarter: 2025Q1

REPORT INFORMATION
  Report Type: Other
  Country: KR (occurrence: KR)
  Receive Date: 20250211
  Receipt Date: 20250211
  Transmission Date: 20250409
  Serious: Yes (Hospitalization, Other)
  Sender: OWLPHARMA CONSULTING
  Company Number: KR-Owlpharma Consulting, Lda.-2170938

PATIENT
  Sex: Male

DRUGS (2)
  1. DEXMEDETOMIDINE HYDROCHLORIDE [Suspect]
     Active Substance: DEXMEDETOMIDINE HYDROCHLORIDE
     Indication: Sedation
     Dates: start: 20230715, end: 20230716
  2. REMIFENTANIL [Concomitant]
     Active Substance: REMIFENTANIL
     Dates: start: 202307, end: 202307

REACTIONS (3)
  - Hypothermia [Recovered/Resolved]
  - Urine output increased [Recovered/Resolved]
  - Bradycardia [Recovered/Resolved]
